FAERS Safety Report 21041117 (Version 2)
Quarter: 2022Q3

REPORT INFORMATION
  Report Type: Spontaneous
  Country: FR (occurrence: FR)
  Receive Date: 20220705
  Receipt Date: 20220724
  Transmission Date: 20221027
  Serious: Yes (Other)
  Sender: FDA-Public Use
  Company Number: FR-CELLTRION INC.-2022FR010189

PATIENT

DRUGS (16)
  1. RITUXIMAB [Suspect]
     Active Substance: RITUXIMAB
     Indication: Epilepsy
     Dosage: 375 MG/M2, 2 DOSES
  2. RITUXIMAB [Suspect]
     Active Substance: RITUXIMAB
     Indication: Stiff person syndrome
     Dosage: 375 MG/M2, 2 DOSES
     Route: 065
  3. RITUXIMAB [Suspect]
     Active Substance: RITUXIMAB
     Dosage: EVERY 6 MONTHS
  4. VALPROATE SODIUM [Suspect]
     Active Substance: VALPROATE SODIUM
     Indication: Epilepsy
     Dosage: UNK
  5. VALPROATE SODIUM [Suspect]
     Active Substance: VALPROATE SODIUM
     Indication: Stiff person syndrome
  6. CYCLOPHOSPHAMIDE [Suspect]
     Active Substance: CYCLOPHOSPHAMIDE
     Indication: Epilepsy
     Dosage: UNK
  7. CYCLOPHOSPHAMIDE [Suspect]
     Active Substance: CYCLOPHOSPHAMIDE
     Indication: Stiff person syndrome
  8. HUMAN IMMUNOGLOBULIN G [Suspect]
     Active Substance: HUMAN IMMUNOGLOBULIN G
     Indication: Epilepsy
     Dosage: UNK
     Route: 042
  9. HUMAN IMMUNOGLOBULIN G [Suspect]
     Active Substance: HUMAN IMMUNOGLOBULIN G
     Indication: Stiff person syndrome
  10. LACOSAMIDE [Suspect]
     Active Substance: LACOSAMIDE
     Indication: Epilepsy
     Dosage: UNK
  11. LACOSAMIDE [Suspect]
     Active Substance: LACOSAMIDE
     Indication: Stiff person syndrome
  12. OXCARBAZEPINE [Concomitant]
     Active Substance: OXCARBAZEPINE
     Indication: Epilepsy
     Dosage: UNK
  13. ZONISAMIDE [Concomitant]
     Active Substance: ZONISAMIDE
     Indication: Epilepsy
     Dosage: UNK
  14. LACOSAMIDE [Concomitant]
     Active Substance: LACOSAMIDE
  15. VALPROATE SODIUM [Concomitant]
     Active Substance: VALPROATE SODIUM
  16. CYCLOPHOSPHAMIDE [Concomitant]
     Active Substance: CYCLOPHOSPHAMIDE

REACTIONS (7)
  - Herpes oesophagitis [Unknown]
  - Encephalitis [Unknown]
  - Off label use [Unknown]
  - Drug ineffective for unapproved indication [Unknown]
  - Immunoglobulins decreased [Unknown]
  - Off label use [Unknown]
  - Drug effective for unapproved indication [Unknown]
